FAERS Safety Report 8968943 (Version 1)
Quarter: 2012Q4

REPORT INFORMATION
  Report Type: 
  Country: US (occurrence: US)
  Receive Date: 20121218
  Receipt Date: 20121218
  Transmission Date: 20130627
  Serious: No
  Sender: FDA-Public Use
  Company Number: US-BRISTOL-MYERS SQUIBB COMPANY-16687436

PATIENT
  Age: 48 Year
  Sex: Female

DRUGS (4)
  1. ABILIFY [Suspect]
     Indication: SCHIZOAFFECTIVE DISORDER
     Dosage: incres to 20mg per dy on 9Apr12
reduced back to 15mg per dy 14Jun12
     Route: 048
     Dates: start: 20110907
  2. VITAMIN D [Concomitant]
  3. CLONAZEPAM [Concomitant]
     Dates: start: 200911
  4. SERTRALINE [Concomitant]
     Dates: start: 201002

REACTIONS (1)
  - Contusion [Unknown]
